FAERS Safety Report 20665815 (Version 1)
Quarter: 2022Q2

REPORT INFORMATION
  Report Type: Spontaneous
  Country: US (occurrence: US)
  Receive Date: 20220402
  Receipt Date: 20220402
  Transmission Date: 20220721
  Serious: No
  Sender: FDA-Public Use
  Company Number: US-AMGEN-USASP2022054100

PATIENT
  Age: 66 Year
  Sex: Female

DRUGS (1)
  1. REPATHA [Suspect]
     Active Substance: EVOLOCUMAB
     Indication: Product used for unknown indication
     Dosage: UNK
     Route: 065

REACTIONS (6)
  - Peripheral swelling [Unknown]
  - Dizziness [Unknown]
  - Amnesia [Unknown]
  - Burning sensation [Unknown]
  - Taste disorder [Unknown]
  - Palpitations [Unknown]

NARRATIVE: CASE EVENT DATE: 20210801
